FAERS Safety Report 25883950 (Version 1)
Quarter: 2025Q4

REPORT INFORMATION
  Report Type: Spontaneous
  Country: BR (occurrence: BR)
  Receive Date: 20251006
  Receipt Date: 20251006
  Transmission Date: 20260118
  Serious: Yes (Hospitalization)
  Sender: MYLAN
  Company Number: BR-MYLANLABS-2025M1084345

PATIENT
  Age: 26 Year
  Sex: Female

DRUGS (4)
  1. CLOZAPINE [Suspect]
     Active Substance: CLOZAPINE
     Indication: Schizophrenia
     Dosage: 500 MILLIGRAM
  2. CLOZAPINE [Suspect]
     Active Substance: CLOZAPINE
     Dosage: 600 MILLIGRAM
  3. CLOZAPINE [Suspect]
     Active Substance: CLOZAPINE
     Dosage: REDUCED TO 400 MILLIGRAM
  4. CLOZAPINE [Suspect]
     Active Substance: CLOZAPINE
     Dosage: REDUCED 375 MILLIGRAM

REACTIONS (3)
  - Toxicity to various agents [Recovering/Resolving]
  - Behaviour disorder [Recovering/Resolving]
  - Anxiety [Recovering/Resolving]
